FAERS Safety Report 9820513 (Version 2)
Quarter: 2014Q1

REPORT INFORMATION
  Report Type: Spontaneous
  Country: GB (occurrence: GB)
  Receive Date: 20140116
  Receipt Date: 20140210
  Transmission Date: 20141002
  Serious: Yes (Other)
  Sender: FDA-Public Use
  Company Number: GB-PFIZER INC-2014010980

PATIENT
  Age: 84 Year
  Sex: Male

DRUGS (6)
  1. LYRICA [Suspect]
     Indication: BACK DISORDER
     Dosage: 25 MG, 3X/DAY
     Dates: start: 201310, end: 20131028
  2. LYRICA [Suspect]
     Indication: SENSORY LOSS
     Dosage: UNK
     Dates: start: 20131113, end: 20131203
  3. LYRICA [Suspect]
     Indication: NERVE DEGENERATION
     Dosage: 25 MG, 2X/DAY
     Dates: start: 20131210, end: 20131213
  4. LYRICA [Suspect]
     Dosage: 25 MG, 1X/DAY
     Dates: start: 20131230
  5. ARCOXIA [Suspect]
     Indication: BACK DISORDER
     Dosage: 90 MG, 1X/DAY
     Dates: start: 201310
  6. TANAKENE [Suspect]
     Indication: BACK DISORDER
     Dosage: UNK
     Dates: start: 201310

REACTIONS (26)
  - Muscle rupture [Not Recovered/Not Resolved]
  - Restless legs syndrome [Unknown]
  - Mental impairment [Unknown]
  - Abnormal dreams [Unknown]
  - Nightmare [Unknown]
  - Abdominal discomfort [Unknown]
  - Constipation [Unknown]
  - Diarrhoea [Unknown]
  - Vomiting [Unknown]
  - Depression [Unknown]
  - Sensation of heaviness [Unknown]
  - Pain in extremity [Unknown]
  - Muscular weakness [Unknown]
  - Visual impairment [Recovering/Resolving]
  - Somnolence [Unknown]
  - Headache [Unknown]
  - Condition aggravated [Unknown]
  - Pain [Unknown]
  - Heart rate irregular [Unknown]
  - Paraesthesia [Unknown]
  - Thirst [Unknown]
  - Joint stiffness [Unknown]
  - Malaise [Unknown]
  - Nerve injury [Unknown]
  - Drug intolerance [Unknown]
  - Sensory loss [Unknown]
